FAERS Safety Report 4680481-9 (Version None)
Quarter: 2005Q2

REPORT INFORMATION
  Report Type: 
  Country: None (occurrence: None)
  Receive Date: 20050602
  Receipt Date: 20041221
  Transmission Date: 20051028
  Serious: Yes (Life-Threatening, Hospitalization)
  Sender: FDA-Public Use
  Company Number: DE-MERCK-0501DEU00076

PATIENT
  Age: 74 Year
  Sex: Female
  Weight: 92 kg

DRUGS (4)
  1. VIOXX [Suspect]
     Indication: SPINAL OSTEOARTHRITIS
     Route: 048
     Dates: start: 20020523, end: 20040415
  2. VIOXX [Suspect]
     Indication: OSTEOARTHRITIS
     Route: 048
     Dates: start: 20020523, end: 20040415
  3. AMIODARONE HYDROCHLORIDE [Concomitant]
     Route: 065
  4. BISOPROLOL [Concomitant]
     Route: 048

REACTIONS (10)
  - ATRIAL FIBRILLATION [None]
  - BLOOD PRESSURE SYSTOLIC INCREASED [None]
  - CARDIAC FAILURE [None]
  - DILATATION ATRIAL [None]
  - DYSPNOEA [None]
  - MITRAL VALVE INCOMPETENCE [None]
  - MITRAL VALVE SCLEROSIS [None]
  - TACHYARRHYTHMIA [None]
  - VENTRICULAR DYSFUNCTION [None]
  - VITAL CAPACITY DECREASED [None]
